FAERS Safety Report 7045718-X (Version None)
Quarter: 2010Q4

REPORT INFORMATION
  Report Type: 
  Country: None (occurrence: None)
  Receive Date: 20101014
  Receipt Date: 20101002
  Transmission Date: 20110411
  Serious: Yes (Death, Other)
  Sender: FDA-Public Use
  Company Number: CO-GENZYME-CLOF-1001251

PATIENT
  Age: 6 Year
  Sex: Male
  Weight: 28 kg

DRUGS (2)
  1. CLOLAR [Suspect]
     Indication: ACUTE LYMPHOCYTIC LEUKAEMIA
     Dosage: 40 MG/M2, QDX5
     Route: 042
     Dates: start: 20081016, end: 20081020
  2. HYDROCORTISONE [Concomitant]
     Indication: PREMEDICATION
     Dosage: 5 MG, QDX5
     Dates: start: 20081016, end: 20081020

REACTIONS (7)
  - CAPILLARY LEAK SYNDROME [None]
  - DEATH [None]
  - FEBRILE NEUTROPENIA [None]
  - LUNG INFECTION [None]
  - MULTI-ORGAN FAILURE [None]
  - NEUTROPENIC COLITIS [None]
  - SEPTIC SHOCK [None]
